FAERS Safety Report 23191346 (Version 1)
Quarter: 2023Q4

REPORT INFORMATION
  Report Type: Spontaneous
  Country: US (occurrence: None)
  Receive Date: 20231115
  Receipt Date: 20231115
  Transmission Date: 20240109
  Serious: Yes (Disabling, Other)
  Sender: FDA-Public Use
  Company Number: None

PATIENT
  Age: 32 Year
  Sex: Female
  Weight: 92.25 kg

DRUGS (6)
  1. ATORVASTATIN [Suspect]
     Active Substance: ATORVASTATIN
     Indication: Blood cholesterol increased
     Dosage: OTHER QUANTITY : 1 TABLET(S);?FREQUENCY : AT BEDTIME;?
     Route: 048
     Dates: start: 20231103, end: 20231113
  2. Nature^s Bounty Multivitamin + Omega [Concomitant]
  3. IRON [Concomitant]
     Active Substance: IRON
  4. Nordic Omega 3 [Concomitant]
  5. Country Life Vitamin D3 [Concomitant]
  6. Metamucil fiber gummy [Concomitant]

REACTIONS (10)
  - Mental disorder [None]
  - Feeling abnormal [None]
  - Fear [None]
  - Agitation [None]
  - Anxiety [None]
  - Dizziness [None]
  - Balance disorder [None]
  - Emotional disorder [None]
  - Therapy interrupted [None]
  - Loss of personal independence in daily activities [None]

NARRATIVE: CASE EVENT DATE: 20231111
